FAERS Safety Report 12770469 (Version 1)
Quarter: 2016Q3

REPORT INFORMATION
  Report Type: Spontaneous
  Country: US (occurrence: US)
  Receive Date: 20160921
  Receipt Date: 20160921
  Transmission Date: 20161109
  Serious: Yes (Other)
  Sender: FDA-Public Use
  Company Number: None

PATIENT
  Age: 50 Year
  Sex: Female
  Weight: 112.5 kg

DRUGS (2)
  1. OMEPRAZOLE 40 MG CAPSULE SANDOZ [Suspect]
     Active Substance: OMEPRAZOLE
     Indication: GASTROOESOPHAGEAL REFLUX DISEASE
     Route: 048
     Dates: start: 20160914, end: 20160919
  2. HYDROCHLOROTHIAZIDE. [Concomitant]
     Active Substance: HYDROCHLOROTHIAZIDE

REACTIONS (8)
  - Paranoia [None]
  - Anxiety [None]
  - Blood pressure abnormal [None]
  - Dyspnoea [None]
  - Muscle spasms [None]
  - Asthenia [None]
  - Nasal congestion [None]
  - Feeling jittery [None]

NARRATIVE: CASE EVENT DATE: 20160914
